FAERS Safety Report 19691537 (Version 2)
Quarter: 2021Q4

REPORT INFORMATION
  Report Type: Spontaneous
  Country: FR (occurrence: FR)
  Receive Date: 20210812
  Receipt Date: 20211109
  Transmission Date: 20220304
  Serious: Yes (Other)
  Sender: FDA-Public Use
  Company Number: FR-THERAMEX-2021000843

PATIENT
  Age: 56 Year
  Sex: Female

DRUGS (19)
  1. BROMAZEPAM [Suspect]
     Active Substance: BROMAZEPAM
     Indication: Product used for unknown indication
     Dosage: UNK
     Route: 065
  2. SINGULAIR [Suspect]
     Active Substance: MONTELUKAST SODIUM
     Indication: Product used for unknown indication
     Dosage: UNK
     Route: 065
  3. VENTOLIN [Suspect]
     Active Substance: ALBUTEROL SULFATE
     Indication: Product used for unknown indication
     Dosage: UNK
     Route: 065
  4. KEPPRA [Suspect]
     Active Substance: LEVETIRACETAM
     Indication: Product used for unknown indication
     Dosage: UNK
     Route: 065
  5. VENLAFAXINE [Suspect]
     Active Substance: VENLAFAXINE HYDROCHLORIDE
     Indication: Headache
     Dosage: UNK
     Route: 065
  6. ALMOTRIPTAN MALATE [Suspect]
     Active Substance: ALMOTRIPTAN MALATE
     Indication: Headache
     Dosage: UNK
     Route: 065
  7. CYPROTERONE ACETATE [Suspect]
     Active Substance: CYPROTERONE ACETATE
     Indication: Hirsutism
     Dosage: UNK
     Route: 065
     Dates: start: 201105, end: 201506
  8. INDOMETHACIN [Suspect]
     Active Substance: INDOMETHACIN
     Indication: Headache
     Dosage: UNK
     Route: 065
  9. CHLORMADINONE ACETATE [Suspect]
     Active Substance: CHLORMADINONE ACETATE
     Indication: Migraine
     Dosage: UNK
     Route: 065
     Dates: start: 20011105, end: 2019
  10. CHLORMADINONE ACETATE [Suspect]
     Active Substance: CHLORMADINONE ACETATE
     Dosage: UNK
     Route: 065
     Dates: start: 2017, end: 2019
  11. OXETORONE [Suspect]
     Active Substance: OXETORONE
     Indication: Headache
     Dosage: UNK
     Route: 065
  12. ASPIRIN LYSINE\METOCLOPRAMIDE HYDROCHLORIDE [Suspect]
     Active Substance: ASPIRIN LYSINE\METOCLOPRAMIDE HYDROCHLORIDE
     Indication: Headache
     Dosage: UNK
     Route: 065
  13. ESCITALOPRAM OXALATE [Suspect]
     Active Substance: ESCITALOPRAM OXALATE
     Indication: Product used for unknown indication
     Dosage: UNK
     Route: 065
  14. NOMEGESTROL ACETATE [Suspect]
     Active Substance: NOMEGESTROL ACETATE
     Indication: Migraine
     Dosage: UNK
     Route: 065
     Dates: start: 2002, end: 2011
  15. NOMEGESTROL ACETATE [Suspect]
     Active Substance: NOMEGESTROL ACETATE
     Indication: Haemorrhage
  16. MEDROL [Suspect]
     Active Substance: METHYLPREDNISOLONE
     Indication: Product used for unknown indication
     Dosage: UNK
     Route: 065
  17. AMITRIPTYLINE HYDROCHLORIDE [Suspect]
     Active Substance: AMITRIPTYLINE HYDROCHLORIDE
     Indication: Headache
     Dosage: UNK
     Route: 065
  18. DIANE (CYPROTERONE ACETATE\ETHINYL ESTRADIOL) [Suspect]
     Active Substance: CYPROTERONE ACETATE\ETHINYL ESTRADIOL
     Indication: Migraine
     Dosage: UNK
     Route: 065
     Dates: start: 1999, end: 2001
  19. DIANE (CYPROTERONE ACETATE\ETHINYL ESTRADIOL) [Suspect]
     Active Substance: CYPROTERONE ACETATE\ETHINYL ESTRADIOL
     Indication: Haemorrhage

REACTIONS (32)
  - Meningioma [Unknown]
  - Exophthalmos [Unknown]
  - Meningioma [Unknown]
  - Disability [Unknown]
  - Condition aggravated [Unknown]
  - Coordination abnormal [Unknown]
  - Eye pain [Unknown]
  - Headache [Unknown]
  - Diplopia [Unknown]
  - Hypoaesthesia eye [Unknown]
  - Paraesthesia [Unknown]
  - Diplopia [Unknown]
  - Pupils unequal [Unknown]
  - Dizziness [Unknown]
  - Eyelid ptosis [Unknown]
  - Visual impairment [Unknown]
  - Somnolence [Unknown]
  - Dizziness [Unknown]
  - Asthenia [Unknown]
  - Amnesia [Unknown]
  - Impaired quality of life [Unknown]
  - Pain [Unknown]
  - Headache [Unknown]
  - Asthenia [Unknown]
  - Gait disturbance [Unknown]
  - Ligament sprain [Unknown]
  - Heterophoria [Unknown]
  - Photophobia [Unknown]
  - Visual impairment [Unknown]
  - Nausea [Unknown]
  - Amnesia [Unknown]
  - Mydriasis [Unknown]

NARRATIVE: CASE EVENT DATE: 20150627
